FAERS Safety Report 9708809 (Version 1)
Quarter: 2013Q4

REPORT INFORMATION
  Report Type: Spontaneous
  Country: US (occurrence: US)
  Receive Date: 20131125
  Receipt Date: 20131125
  Transmission Date: 20140711
  Serious: Yes (Other)
  Sender: FDA-Public Use
  Company Number: CHPA2013US017557

PATIENT
  Age: 56 Year
  Sex: Male

DRUGS (3)
  1. VOLTAREN GEL [Suspect]
     Indication: ARTHRITIS
     Dosage: A LITTLE DAB, UNK
     Route: 061
     Dates: start: 20131116, end: 20131119
  2. VOLTAREN GEL [Suspect]
     Indication: INFLAMMATION
  3. VOLTAREN GEL [Suspect]
     Indication: OFF LABEL USE

REACTIONS (1)
  - Faeces discoloured [Recovering/Resolving]
